FAERS Safety Report 6765552-5 (Version None)
Quarter: 2010Q2

REPORT INFORMATION
  Report Type: 
  Country: None (occurrence: None)
  Receive Date: 20100610
  Receipt Date: 20100610
  Transmission Date: 20101027
  Serious: No
  Sender: FDA-Public Use
  Company Number: None

PATIENT
  Age: 55 Year
  Sex: Female
  Weight: 107.0489 kg

DRUGS (2)
  1. REQUIP [Suspect]
     Indication: PARKINSON'S DISEASE
     Dosage: 5 MG 2 DAILY
     Dates: start: 20020101
  2. REQUIP [Suspect]
     Indication: PARKINSON'S DISEASE
     Dosage: 5 MG 2 DAILY
     Dates: start: 20060101

REACTIONS (1)
  - PATHOLOGICAL GAMBLING [None]
